FAERS Safety Report 17375493 (Version 6)
Quarter: 2020Q2

REPORT INFORMATION
  Report Type: Spontaneous
  Country: US (occurrence: US)
  Receive Date: 20200205
  Receipt Date: 20200611
  Transmission Date: 20200713
  Serious: Yes (Hospitalization)
  Sender: FDA-Public Use
  Company Number: US-AMNEAL PHARMACEUTICALS-2020-AMRX-00285

PATIENT
  Age: 29 Year
  Sex: Female
  Weight: 67.12 kg

DRUGS (8)
  1. ACTIVELLA [Suspect]
     Active Substance: ESTRADIOL\NORETHINDRONE ACETATE
     Indication: ENDOMETRIOSIS
     Dosage: 1 TABLETS, 1 /DAY
     Route: 048
     Dates: start: 20190829, end: 20200108
  2. ELAGOLIX [Suspect]
     Active Substance: ELAGOLIX
     Dosage: 2 TABLETS, 1 /DAY
     Route: 048
     Dates: start: 20200112
  3. PLACEBO [Suspect]
     Active Substance: UNSPECIFIED INGREDIENT
     Indication: ENDOMETRIOSIS
     Dosage: 1 DOSAGE FORM, 1 /DAY
     Route: 048
     Dates: start: 20180710, end: 20190828
  4. SERTRALINE [Concomitant]
     Active Substance: SERTRALINE HYDROCHLORIDE
     Indication: DEPRESSION
     Dosage: 1 DOSAGE FORM, QD
     Route: 048
     Dates: start: 20190117
  5. ACTIVELLA [Suspect]
     Active Substance: ESTRADIOL\NORETHINDRONE ACETATE
     Dosage: 1 TABLETS, 1 /DAY
     Route: 048
     Dates: start: 20200108
  6. ELAGOLIX [Suspect]
     Active Substance: ELAGOLIX
     Indication: ENDOMETRIOSIS
     Dosage: 2 TABLETS, 1 /DAY
     Route: 048
     Dates: start: 20190829, end: 20200108
  7. THOMAPYRIN N [Concomitant]
     Active Substance: ACETAMINOPHEN\ASPIRIN\CAFFEINE
     Indication: MIGRAINE
     Dosage: 250 MILLIGRAM PRN
     Route: 048
     Dates: start: 20190801
  8. LORAZEPAM. [Concomitant]
     Active Substance: LORAZEPAM
     Indication: PRODUCT USED FOR UNKNOWN INDICATION
     Dosage: 1 MILLIGRAM PRN
     Route: 065
     Dates: start: 20190117

REACTIONS (1)
  - Flank pain [Recovered/Resolved]

NARRATIVE: CASE EVENT DATE: 20200111
